FAERS Safety Report 7893225-4 (Version None)
Quarter: 2011Q4

REPORT INFORMATION
  Report Type: 
  Country: None (occurrence: None)
  Receive Date: 20111104
  Receipt Date: 20111101
  Transmission Date: 20120403
  Serious: Yes (Death, Other)
  Sender: FDA-Public Use
  Company Number: PHHY2011CA96522

PATIENT
  Sex: Female

DRUGS (1)
  1. CLOZARIL [Suspect]
     Dates: start: 20081021

REACTIONS (5)
  - VASCULAR INJURY [None]
  - ACCIDENTAL DEATH [None]
  - JOINT DISLOCATION [None]
  - GANGRENE [None]
  - ARTERIAL INSUFFICIENCY [None]
